FAERS Safety Report 9288028 (Version 1)
Quarter: 2013Q2

REPORT INFORMATION
  Report Type: Spontaneous
  Country: ID (occurrence: None)
  Receive Date: 20130506
  Receipt Date: 20130506
  Transmission Date: 20140414
  Serious: Yes (Other)
  Sender: FDA-Public Use
  Company Number: TPA2013A03193

PATIENT
  Age: 57 Year
  Sex: Female

DRUGS (3)
  1. ACTOS [Suspect]
     Indication: DIABETES MELLITUS
  2. JANUVIA (SITAGLIPTIN PHOSPHATE) [Suspect]
     Indication: DIABETES MELLITUS
  3. VICTOZA (LIRAGLUTIDE) [Suspect]
     Indication: DIABETES MELLITUS

REACTIONS (4)
  - Diabetic foot [None]
  - Vision blurred [None]
  - Drug ineffective [None]
  - Toe amputation [None]
